FAERS Safety Report 26060056 (Version 1)
Quarter: 2025Q4

REPORT INFORMATION
  Report Type: Spontaneous
  Country: EU (occurrence: EU)
  Receive Date: 20251118
  Receipt Date: 20251118
  Transmission Date: 20260118
  Serious: Yes (Death)
  Sender: MYLAN
  Company Number: None

PATIENT
  Age: 93 Year
  Sex: Female
  Weight: 45 kg

DRUGS (8)
  1. LANSOPRAZOLE [Suspect]
     Active Substance: LANSOPRAZOLE
     Indication: Product used for unknown indication
     Dosage: UNK, DOSAGE NOT SPECIFIED
  2. LANSOPRAZOLE [Suspect]
     Active Substance: LANSOPRAZOLE
     Dosage: UNK, DOSAGE NOT SPECIFIED
     Route: 065
  3. LANSOPRAZOLE [Suspect]
     Active Substance: LANSOPRAZOLE
     Dosage: UNK, DOSAGE NOT SPECIFIED
     Route: 065
  4. LANSOPRAZOLE [Suspect]
     Active Substance: LANSOPRAZOLE
     Dosage: UNK, DOSAGE NOT SPECIFIED
  5. DAPTOMYCIN [Suspect]
     Active Substance: DAPTOMYCIN
     Indication: Staphylococcal bacteraemia
     Dosage: UNK, DOSAGE NOT SPECIFIED
     Dates: start: 20250826, end: 20250907
  6. DAPTOMYCIN [Suspect]
     Active Substance: DAPTOMYCIN
     Dosage: UNK, DOSAGE NOT SPECIFIED
     Route: 065
     Dates: start: 20250826, end: 20250907
  7. DAPTOMYCIN [Suspect]
     Active Substance: DAPTOMYCIN
     Dosage: UNK, DOSAGE NOT SPECIFIED
     Route: 065
     Dates: start: 20250826, end: 20250907
  8. DAPTOMYCIN [Suspect]
     Active Substance: DAPTOMYCIN
     Dosage: UNK, DOSAGE NOT SPECIFIED
     Dates: start: 20250826, end: 20250907

REACTIONS (1)
  - Agranulocytosis [Fatal]

NARRATIVE: CASE EVENT DATE: 20250904
